FAERS Safety Report 24175079 (Version 4)
Quarter: 2024Q3

REPORT INFORMATION
  Report Type: Spontaneous
  Country: JP (occurrence: JP)
  Receive Date: 20240805
  Receipt Date: 20240819
  Transmission Date: 20241017
  Serious: Yes (Other)
  Sender: ABBVIE
  Company Number: JP-GSKJP-JP2024JPN095034

PATIENT
  Age: 62 Year
  Sex: Male

DRUGS (2)
  1. BOTOX [Suspect]
     Active Substance: ONABOTULINUMTOXINA
     Indication: Facial spasm
     Dosage: TIME INTERVAL: AS NECESSARY: UNK, 7 TIMES IN TOTAL AT 5-7 MONTH INTERVALS
     Route: 030
  2. ALCOHOL [Concomitant]
     Active Substance: ALCOHOL
     Indication: Product used for unknown indication
     Route: 065

REACTIONS (8)
  - Cryptococcosis [Recovered/Resolved]
  - Injection site rash [Unknown]
  - Pulmonary mass [Unknown]
  - Injection site scar [Unknown]
  - Injection site indentation [Unknown]
  - Injection site pain [Unknown]
  - Injection site erythema [Unknown]
  - Injection site scab [Unknown]
